FAERS Safety Report 21305988 (Version 2)
Quarter: 2022Q4

REPORT INFORMATION
  Report Type: Spontaneous
  Country: MU (occurrence: MU)
  Receive Date: 20220908
  Receipt Date: 20221020
  Transmission Date: 20230113
  Serious: Yes (Death)
  Sender: FDA-Public Use
  Company Number: MU-NOVARTISPH-NVSC2022MU202127

PATIENT
  Sex: Female

DRUGS (1)
  1. GLIVEC [Suspect]
     Active Substance: IMATINIB MESYLATE
     Indication: Acute lymphocytic leukaemia
     Dosage: 600 MG (6 X 100 MG TABLETS)
     Route: 048
     Dates: start: 202203, end: 202207

REACTIONS (1)
  - Acute lymphocytic leukaemia [Fatal]
